FAERS Safety Report 7220845-2 (Version None)
Quarter: 2011Q1

REPORT INFORMATION
  Report Type: 
  Country: None (occurrence: None)
  Receive Date: 20110112
  Receipt Date: 20101216
  Transmission Date: 20110831
  Serious: Yes (Other)
  Sender: FDA-Public Use
  Company Number: KR-CELGENEUS-286-50794-10122120

PATIENT

DRUGS (2)
  1. DECITABINE [Suspect]
     Route: 051
  2. VIDAZA [Suspect]
     Route: 058

REACTIONS (6)
  - DRUG INEFFECTIVE [None]
  - PANCYTOPENIA [None]
  - ACUTE MYELOID LEUKAEMIA [None]
  - MYELODYSPLASTIC SYNDROME TRANSFORMATION [None]
  - TREATMENT FAILURE [None]
  - MYELODYSPLASTIC SYNDROME [None]
